FAERS Safety Report 8824323 (Version 2)
Quarter: 2012Q4

REPORT INFORMATION
  Report Type: Report from Study
  Country: FR (occurrence: FR)
  Receive Date: 20121004
  Receipt Date: 20121012
  Transmission Date: 20130627
  Serious: Yes (Other)
  Sender: FDA-Public Use
  Company Number: FR-JNJFOC-20120516371

PATIENT
  Age: 25 Year
  Sex: Female
  Weight: 45 kg

DRUGS (4)
  1. PALIPERIDONE PALMITATE [Suspect]
     Indication: SCHIZOPHRENIA
     Route: 030
     Dates: start: 20111212, end: 20120322
  2. SEROPLEX [Concomitant]
     Indication: DEPRESSION
     Route: 048
     Dates: start: 20120413
  3. VALIUM [Concomitant]
     Indication: ANXIETY
     Route: 048
     Dates: start: 20120320, end: 20120419
  4. ARIPIPRAZOLE [Concomitant]
     Indication: SCHIZOPHRENIA
     Route: 048
     Dates: start: 20120419

REACTIONS (2)
  - Abortion spontaneous [Recovered/Resolved]
  - Exposure during pregnancy [Recovered/Resolved]
